FAERS Safety Report 17713281 (Version 1)
Quarter: 2020Q2

REPORT INFORMATION
  Report Type: Spontaneous
  Country: FR (occurrence: FR)
  Receive Date: 20200427
  Receipt Date: 20200427
  Transmission Date: 20200714
  Serious: Yes (Hospitalization, Other)
  Sender: FDA-Public Use
  Company Number: FR-SA-2020SA108319

PATIENT
  Age: 65 Year
  Sex: Male
  Weight: 113 kg

DRUGS (2)
  1. LEVOFLOXACIN. [Suspect]
     Active Substance: LEVOFLOXACIN
     Indication: ARTHRITIS INFECTIVE
     Dosage: 750 MG, QOD
     Route: 048
     Dates: start: 20200120, end: 20200313
  2. RIFAMPICIN [Suspect]
     Active Substance: RIFAMPIN
     Indication: ARTHRITIS INFECTIVE
     Dosage: 1200 MG, QD
     Route: 048
     Dates: start: 20200120, end: 20200404

REACTIONS (1)
  - Acute motor-sensory axonal neuropathy [Recovering/Resolving]

NARRATIVE: CASE EVENT DATE: 20200227
